FAERS Safety Report 4756392-7 (Version None)
Quarter: 2005Q3

REPORT INFORMATION
  Report Type: 
  Country: None (occurrence: None)
  Receive Date: 20050830
  Receipt Date: 20050614
  Transmission Date: 20060218
  Serious: No
  Sender: FDA-Public Use
  Company Number: US-GLAXOSMITHKLINE-A0562611A

PATIENT
  Age: 44 Year
  Sex: Female

DRUGS (2)
  1. WELLBUTRIN [Suspect]
     Indication: PREMENSTRUAL SYNDROME
     Dosage: 150MG PER DAY
     Route: 048
  2. TRIAMTERENE [Concomitant]

REACTIONS (6)
  - AGITATION [None]
  - CRYING [None]
  - DRUG ADMINISTRATION ERROR [None]
  - FEELING ABNORMAL [None]
  - INSOMNIA [None]
  - PREMENSTRUAL SYNDROME [None]
